FAERS Safety Report 5137555-8 (Version None)
Quarter: 2006Q4

REPORT INFORMATION
  Report Type: 
  Country: None (occurrence: None)
  Receive Date: 20061030
  Receipt Date: 20051114
  Transmission Date: 20070319
  Serious: No
  Sender: FDA-Public Use
  Company Number: 4799063

PATIENT
  Sex: Female

DRUGS (2)
  1. ADVAIR HFA [Suspect]
     Indication: ASTHMA
     Route: 055
  2. ALBUTEROL [Concomitant]

REACTIONS (1)
  - ARRHYTHMIA [None]
